FAERS Safety Report 6899937-3 (Version None)
Quarter: 2010Q3

REPORT INFORMATION
  Report Type: 
  Country: None (occurrence: None)
  Receive Date: 20100708
  Receipt Date: 20090925
  Transmission Date: 20110219
  Serious: Yes (Other)
  Sender: FDA-Public Use
  Company Number: 2006133422

PATIENT
  Age: 50 Year
  Sex: Female
  Weight: 113 kg

DRUGS (1)
  1. CHANTIX [Suspect]
     Indication: SMOKING CESSATION THERAPY
     Dosage: ORAL
     Route: 048

REACTIONS (12)
  - ABNORMAL BEHAVIOUR [None]
  - AGITATION [None]
  - DEPRESSED MOOD [None]
  - DIZZINESS [None]
  - DRUG INEFFECTIVE [None]
  - HOSTILITY [None]
  - HYPERSOMNIA [None]
  - INSOMNIA [None]
  - MEMORY IMPAIRMENT [None]
  - SUICIDAL BEHAVIOUR [None]
  - SUICIDAL IDEATION [None]
  - VOMITING [None]
